FAERS Safety Report 7922534-5 (Version None)
Quarter: 2011Q4

REPORT INFORMATION
  Report Type: 
  Country: None (occurrence: None)
  Receive Date: 20111117
  Receipt Date: 20110121
  Transmission Date: 20120403
  Serious: No
  Sender: FDA-Public Use
  Company Number: US-AMGEN-USASP2011003875

PATIENT
  Age: 30 Year
  Sex: Female

DRUGS (1)
  1. ENBREL [Suspect]
     Indication: PSORIASIS
     Dosage: 50 MG, 2 TIMES/WK
     Dates: start: 20101229

REACTIONS (9)
  - MALAISE [None]
  - EYE PRURITUS [None]
  - PAIN [None]
  - PRODUCTIVE COUGH [None]
  - INJECTION SITE HAEMORRHAGE [None]
  - PARANASAL SINUS HYPERSECRETION [None]
  - APHONIA [None]
  - FATIGUE [None]
  - INJECTION SITE HAEMATOMA [None]
